FAERS Safety Report 11810075 (Version 1)
Quarter: 2015Q4

REPORT INFORMATION
  Report Type: Spontaneous
  Country: US (occurrence: None)
  Receive Date: 20151207
  Receipt Date: 20151207
  Transmission Date: 20160305
  Serious: Yes (Other)
  Sender: FDA-Public Use
  Company Number: None

PATIENT
  Age: 38 Year
  Sex: Male
  Weight: 90.72 kg

DRUGS (1)
  1. CYMBALTA [Suspect]
     Active Substance: DULOXETINE HYDROCHLORIDE
     Indication: NEUROPATHY PERIPHERAL
     Route: 048
     Dates: start: 20140701, end: 20141231

REACTIONS (22)
  - Nausea [None]
  - Dizziness [None]
  - Vomiting [None]
  - Drug ineffective [None]
  - Gait disturbance [None]
  - Muscle spasms [None]
  - Abdominal distension [None]
  - Tremor [None]
  - Anxiety [None]
  - Depression [None]
  - Diarrhoea [None]
  - Constipation [None]
  - Nightmare [None]
  - Hyperhidrosis [None]
  - Sleep disorder [None]
  - Migraine [None]
  - Emotional disorder [None]
  - Cardiac disorder [None]
  - Mania [None]
  - Movement disorder [None]
  - Agitation [None]
  - Vertigo [None]
